FAERS Safety Report 10421006 (Version 1)
Quarter: 2014Q3

REPORT INFORMATION
  Report Type: Spontaneous
  Country: GB (occurrence: None)
  Receive Date: 20140828
  Receipt Date: 20140828
  Transmission Date: 20150326
  Serious: Yes (Other)
  Sender: FDA-Public Use
  Company Number: 1443383

PATIENT
  Age: 62 Year
  Sex: Female
  Weight: 72.12 kg

DRUGS (9)
  1. METHYLSULFONYLMETHANE [Concomitant]
     Active Substance: DIMETHYL SULFONE
  2. VITAMIN D [Concomitant]
     Active Substance: CHOLECALCIFEROL
  3. TAMOXIFEN (NON-SPECIFIC) [Suspect]
     Active Substance: TAMOXIFEN
     Indication: BREAST CANCER
     Route: 048
     Dates: start: 201008
  4. LETROZOL [Suspect]
     Active Substance: LETROZOLE
     Indication: BREAST CANCER
     Dosage: NOS
     Route: 048
     Dates: start: 201301, end: 201301
  5. CALCIUM [Concomitant]
     Active Substance: CALCIUM
  6. L-THYROXINE [Concomitant]
     Active Substance: LEVOTHYROXINE
  7. ALLOPURINOL. [Concomitant]
     Active Substance: ALLOPURINOL
  8. GLUCOSAMINE [Concomitant]
     Active Substance: GLUCOSAMINE
  9. MULTIVITAMIN [Concomitant]
     Active Substance: VITAMINS

REACTIONS (8)
  - Muscle atrophy [None]
  - Depression [None]
  - Gastroenteritis [None]
  - Cardiovascular disorder [None]
  - Loss of consciousness [None]
  - Hot flush [None]
  - Arthritis [None]
  - Alcohol interaction [None]

NARRATIVE: CASE EVENT DATE: 201008
